FAERS Safety Report 9541473 (Version 1)
Quarter: 2013Q3

REPORT INFORMATION
  Report Type: Spontaneous
  Country: US (occurrence: US)
  Receive Date: 20130923
  Receipt Date: 20130923
  Transmission Date: 20140515
  Serious: Yes (Other)
  Sender: FDA-Public Use
  Company Number: US-BRISTOL-MYERS SQUIBB COMPANY-19398361

PATIENT
  Age: 52 Year
  Sex: Female
  Weight: 104.31 kg

DRUGS (1)
  1. ELIQUIS [Suspect]
     Indication: PULMONARY EMBOLISM

REACTIONS (2)
  - Pneumonia [Unknown]
  - Local swelling [Unknown]
